FAERS Safety Report 4799718-0 (Version None)
Quarter: 2005Q4

REPORT INFORMATION
  Report Type: 
  Country: None (occurrence: None)
  Receive Date: 20051006
  Receipt Date: 20051006
  Transmission Date: 20060501
  Serious: Yes (Hospitalization)
  Sender: FDA-Public Use
  Company Number: None

PATIENT
  Age: 56 Year
  Sex: Male
  Weight: 74.6 kg

DRUGS (3)
  1. METHADONE 125MG DAILY [Suspect]
     Indication: DRUG DEPENDENCE
     Dosage: 125 MG PO DAY
     Route: 048
  2. VORICONAZOLE 200MG BID [Suspect]
     Indication: ASPERGILLOSIS
     Dosage: 200 MG BID
     Dates: start: 20040501
  3. VORICONAZOLE 200MG BID [Suspect]
     Indication: MENINGITIS
     Dosage: 200 MG BID
     Dates: start: 20040501

REACTIONS (4)
  - ELECTROCARDIOGRAM QT PROLONGED [None]
  - SYNCOPE [None]
  - TORSADE DE POINTES [None]
  - VENTRICULAR ARRHYTHMIA [None]
